FAERS Safety Report 7475620-0 (Version None)
Quarter: 2011Q2

REPORT INFORMATION
  Report Type: 
  Country: None (occurrence: None)
  Receive Date: 20110504
  Receipt Date: 20110419
  Transmission Date: 20111010
  Serious: Yes (Hospitalization, Other)
  Sender: FDA-Public Use
  Company Number: ADE2009-0682

PATIENT
  Age: 61 Year
  Sex: Female

DRUGS (6)
  1. CYCLOSPORINE [Suspect]
     Indication: RENAL TRANSPLANT
  2. SIMVASTATIN [Suspect]
     Dosage: 40MG, DAILY
  3. PREDNISOLONE [Concomitant]
  4. CYCLOSPORINE [Concomitant]
  5. WARFARIN SODIUM [Concomitant]
  6. AZATHIOPRINE [Concomitant]

REACTIONS (4)
  - DRUG LEVEL INCREASED [None]
  - RENAL FAILURE [None]
  - RHABDOMYOLYSIS [None]
  - UBIQUINONE DECREASED [None]
